FAERS Safety Report 17738803 (Version 1)
Quarter: 2020Q2

REPORT INFORMATION
  Report Type: Spontaneous
  Country: US (occurrence: US)
  Receive Date: 20200430
  Receipt Date: 20200430
  Transmission Date: 20200714
  Serious: Yes (Other)
  Sender: FDA-Public Use
  Company Number: None

PATIENT
  Age: 11 Year
  Weight: 42.3 kg

DRUGS (1)
  1. SUPPRELIN LA [Suspect]
     Active Substance: HISTRELIN ACETATE
     Indication: GENDER DYSPHORIA
     Dosage: ?          OTHER FREQUENCY:YEARLY;?
     Dates: start: 20190816, end: 20200220

REACTIONS (1)
  - Device dislocation [None]

NARRATIVE: CASE EVENT DATE: 20200220
